FAERS Safety Report 18099299 (Version 1)
Quarter: 2020Q3

REPORT INFORMATION
  Report Type: Spontaneous
  Country: US (occurrence: US)
  Receive Date: 20200731
  Receipt Date: 20200731
  Transmission Date: 20201103
  Serious: Yes (Other)
  Sender: FDA-Public Use
  Company Number: None

PATIENT
  Age: 40 Year
  Sex: Female
  Weight: 83.25 kg

DRUGS (1)
  1. SYNTHROID [Suspect]
     Active Substance: LEVOTHYROXINE SODIUM
     Indication: HYPOTHYROIDISM
     Dosage: ?          QUANTITY:90 TABLET(S);?
     Route: 048
     Dates: start: 20200602, end: 20200728

REACTIONS (11)
  - Hyperhidrosis [None]
  - Dyspnoea [None]
  - Dizziness [None]
  - Paraesthesia [None]
  - Product substitution issue [None]
  - Chest pain [None]
  - Eructation [None]
  - Dyspepsia [None]
  - Chest discomfort [None]
  - Dissociation [None]
  - Anxiety [None]
